FAERS Safety Report 6387441-0 (Version None)
Quarter: 2009Q3

REPORT INFORMATION
  Report Type: 
  Country: None (occurrence: None)
  Receive Date: 20090930
  Receipt Date: 20090916
  Transmission Date: 20100115
  Serious: Yes (Hospitalization)
  Sender: FDA-Public Use
  Company Number: KV200900180

PATIENT
  Age: 55 Year
  Sex: Female
  Weight: 81.6 kg

DRUGS (7)
  1. HISTINEX HC (ANTITUSSIVE, NASAL DECONGESTANT, ANTIHISTAMINE) SYRUP [Suspect]
     Indication: DRUG USE FOR UNKNOWN INDICATION
     Dosage: ORAL
     Route: 048
     Dates: start: 20080214
  2. ATENOLOL [Concomitant]
  3. COZAAR [Concomitant]
  4. METHOTREXATE [Concomitant]
  5. DYAZIDE [Concomitant]
  6. LIPITOR [Concomitant]
  7. TUMS /00108001/ (CALCIUM CARBONATE) [Concomitant]

REACTIONS (5)
  - CELLULITIS [None]
  - HYPOKALAEMIA [None]
  - LOSS OF CONSCIOUSNESS [None]
  - SYNCOPE [None]
  - THERMAL BURN [None]
